FAERS Safety Report 4626753-5 (Version None)
Quarter: 2005Q2

REPORT INFORMATION
  Report Type: 
  Country: None (occurrence: None)
  Receive Date: 20050405
  Receipt Date: 20050324
  Transmission Date: 20051028
  Serious: Yes (Death)
  Sender: FDA-Public Use
  Company Number: DE-BRISTOL-MYERS SQUIBB COMPANY-12915112

PATIENT

DRUGS (1)
  1. GLUCOPHAGE [Suspect]

REACTIONS (4)
  - ACCIDENTAL OVERDOSE [None]
  - LACTIC ACIDOSIS [None]
  - MEDICATION ERROR [None]
  - RENAL FAILURE [None]
